FAERS Safety Report 19478089 (Version 1)
Quarter: 2021Q2

REPORT INFORMATION
  Report Type: Spontaneous
  Country: NO (occurrence: NO)
  Receive Date: 20210630
  Receipt Date: 20210630
  Transmission Date: 20210717
  Serious: Yes (Hospitalization)
  Sender: FDA-Public Use
  Company Number: NO-STRIDES ARCOLAB LIMITED-2021SP007026

PATIENT
  Age: 6 Decade
  Sex: Male

DRUGS (6)
  1. RASAGILINE. [Suspect]
     Active Substance: RASAGILINE
     Indication: PARKINSON^S DISEASE
     Dosage: 1 MILLIGRAM (LEDD: 100MG)
     Route: 065
  2. LEVODOPA/CARBIDOPA/ENTACAPONE [Suspect]
     Active Substance: CARBIDOPA\ENTACAPONE\LEVODOPA
     Dosage: UNK (125/31.5/200MG SEVEN TIMES DAILY (LEDD: LEVODOPA 875MG AND ENTACAPONE 289MG))
     Route: 048
  3. LEVODOPA/CARBIDOPA/ENTACAPONE [Suspect]
     Active Substance: CARBIDOPA\ENTACAPONE\LEVODOPA
     Indication: PARKINSON^S DISEASE
     Dosage: UNK (SIX DOSE DAILY)
     Route: 065
  4. PRAMIPEXOLE DIHYDROCHLORIDE. [Suspect]
     Active Substance: PRAMIPEXOLE DIHYDROCHLORIDE
     Indication: PARKINSON^S DISEASE
     Dosage: 1.05 MILLIGRAM (LEDD: 315MG)
     Route: 065
  5. SELEGILINE [SELEGILINE HYDROCHLORIDE] [Concomitant]
     Indication: PARKINSON^S DISEASE
     Dosage: UNK
     Route: 065
  6. LEVODOPA/CARBIDOPA/ENTACAPONE [Suspect]
     Active Substance: CARBIDOPA\ENTACAPONE\LEVODOPA
     Dosage: UNK200/50/200MG SEVEN TIMES DAILY (LEVODOPA?EQUIVALENT DOSES (LEDD): ENTACAPONE 462MG, LEVODOPA 1400
     Route: 048

REACTIONS (7)
  - Impulsive behaviour [Recovered/Resolved]
  - Psychomotor hyperactivity [Unknown]
  - Hypomania [Unknown]
  - Psychotic disorder [Not Recovered/Not Resolved]
  - Delusion [Not Recovered/Not Resolved]
  - Dyskinesia [Recovered/Resolved]
  - Cognitive disorder [Unknown]
